FAERS Safety Report 5243040-5 (Version None)
Quarter: 2007Q1

REPORT INFORMATION
  Report Type: 
  Country: None (occurrence: None)
  Receive Date: 20070215
  Receipt Date: 20070203
  Transmission Date: 20070707
  Serious: Yes (Other)
  Sender: FDA-Public Use
  Company Number: 30798

PATIENT
  Age: 58 Year
  Sex: Female

DRUGS (11)
  1. ALDARA [Suspect]
     Indication: ACTINIC KERATOSIS
     Dosage: (0.5 SACHET, 5 IN 1 WEEK(S), TOPICAL
     Route: 061
     Dates: start: 20060101, end: 20060101
  2. ALDARA [Suspect]
     Indication: BASAL CELL CARCINOMA
     Dosage: (0.5 SACHET, 5 IN 1 WEEK(S), TOPICAL
     Route: 061
     Dates: start: 20060101, end: 20060101
  3. ALDARA [Suspect]
     Indication: ACTINIC KERATOSIS
     Dosage: (0.5 SACHET, 5 IN 1 WEEK(S), TOPICAL
     Route: 061
     Dates: start: 20061225, end: 20070113
  4. ALDARA [Suspect]
     Indication: BASAL CELL CARCINOMA
     Dosage: (0.5 SACHET, 5 IN 1 WEEK(S), TOPICAL
     Route: 061
     Dates: start: 20061225, end: 20070113
  5. ALTACE [Suspect]
  6. HYDROCHLOROTHIAZIDE [Suspect]
  7. ZETIA [Suspect]
  8. FOLIC ACID [Suspect]
  9. ASPIRIN [Suspect]
  10. FISH OIL [Suspect]
  11. KEFLEX [Suspect]

REACTIONS (5)
  - APPLICATION SITE REACTION [None]
  - APPLICATION SITE SCAB [None]
  - DRUG DOSE OMISSION [None]
  - ERYTHEMA MULTIFORME [None]
  - LOCALISED INFECTION [None]
